FAERS Safety Report 23902791 (Version 2)
Quarter: 2024Q3

REPORT INFORMATION
  Report Type: Spontaneous
  Country: MY (occurrence: MY)
  Receive Date: 20240527
  Receipt Date: 20240702
  Transmission Date: 20241017
  Serious: No
  Sender: TOLMAR
  Company Number: MY-TOLMAR, INC.-24MY048914

PATIENT

DRUGS (2)
  1. ELIGARD [Suspect]
     Active Substance: LEUPROLIDE ACETATE
     Indication: Product used for unknown indication
     Dosage: 45 MILLIGRAM
  2. DEVICE [Suspect]
     Active Substance: DEVICE
     Indication: Product used for unknown indication
     Dosage: UNK

REACTIONS (4)
  - Intercepted product preparation error [Unknown]
  - Product physical consistency issue [Unknown]
  - Syringe issue [Unknown]
  - Device leakage [Unknown]
